FAERS Safety Report 7031685-1 (Version None)
Quarter: 2010Q4

REPORT INFORMATION
  Report Type: 
  Country: None (occurrence: None)
  Receive Date: 20101001
  Receipt Date: 20100924
  Transmission Date: 20110411
  Serious: Yes (Hospitalization)
  Sender: FDA-Public Use
  Company Number: 019141

PATIENT
  Age: 74 Year
  Sex: Female

DRUGS (4)
  1. NEUPRO [Suspect]
     Dosage: (2 MG TRANSDERMAL), (3 MG TRANSDERMAL)
     Route: 062
  2. LEVODOPA (LEVODOPA) [Suspect]
     Dosage: (100 MG)
  3. REQUIP [Suspect]
     Dosage: (3.5 MG)
     Dates: start: 20080101
  4. RESTEX [Concomitant]

REACTIONS (12)
  - CARDIOVASCULAR DISORDER [None]
  - DEPRESSED MOOD [None]
  - DIZZINESS [None]
  - INITIAL INSOMNIA [None]
  - MOOD ALTERED [None]
  - PAIN IN EXTREMITY [None]
  - PERIODIC LIMB MOVEMENT DISORDER [None]
  - POOR QUALITY SLEEP [None]
  - RESTLESS LEGS SYNDROME [None]
  - SLEEP DISORDER [None]
  - SNORING [None]
  - UNEVALUABLE EVENT [None]
